FAERS Safety Report 7282130-2 (Version None)
Quarter: 2011Q1

REPORT INFORMATION
  Report Type: 
  Country: None (occurrence: None)
  Receive Date: 20110208
  Receipt Date: 20110201
  Transmission Date: 20110831
  Serious: Yes (Hospitalization, Other)
  Sender: FDA-Public Use
  Company Number: BR-PFIZER INC-2010121057

PATIENT
  Age: 58 Year
  Sex: Male

DRUGS (4)
  1. DIAMICRON MR [Concomitant]
     Indication: DIABETES MELLITUS
     Dosage: 60 MG, 1X/DAY
     Dates: start: 20090101
  2. NPH INSULIN [Concomitant]
     Indication: DIABETES MELLITUS
     Dosage: 33 UNITS, 1 APPLICATION AT 10:00PM
     Dates: start: 20090101
  3. LIPITOR [Suspect]
     Indication: CORONARY ARTERY DISEASE
     Dosage: UNK
     Route: 048
     Dates: start: 20090301
  4. ACETYLSALICYLIC ACID [Concomitant]
     Dosage: UNK

REACTIONS (8)
  - INSULIN-REQUIRING TYPE 2 DIABETES MELLITUS [None]
  - ARTERIOSCLEROSIS [None]
  - ARTERIAL OCCLUSIVE DISEASE [None]
  - ACUTE MYOCARDIAL INFARCTION [None]
  - LIPID METABOLISM DISORDER [None]
  - RENAL IMPAIRMENT [None]
  - OEDEMA PERIPHERAL [None]
  - PAIN IN EXTREMITY [None]
